FAERS Safety Report 13573386 (Version 4)
Quarter: 2017Q2

REPORT INFORMATION
  Report Type: Report from Study
  Country: AU (occurrence: AU)
  Receive Date: 20170523
  Receipt Date: 20170609
  Transmission Date: 20170830
  Serious: Yes (Life-Threatening, Hospitalization)
  Sender: FDA-Public Use
  Company Number: AU-EMD SERONO-E2B_80062256

PATIENT
  Age: 57 Year
  Sex: Female
  Weight: 73 kg

DRUGS (7)
  1. AVELUMAB [Suspect]
     Active Substance: AVELUMAB
     Indication: NON-SMALL CELL LUNG CANCER
     Route: 042
     Dates: start: 20170315, end: 20170315
  2. GEMCITABINE [Suspect]
     Active Substance: GEMCITABINE\GEMCITABINE HYDROCHLORIDE
     Indication: NON-SMALL CELL LUNG CANCER
     Route: 042
     Dates: start: 20170112, end: 20170223
  3. LORATADINE. [Concomitant]
     Active Substance: LORATADINE
     Indication: PREMEDICATION
     Dates: start: 20170315, end: 20170315
  4. PALONOSETRON [Concomitant]
     Active Substance: PALONOSETRON
     Indication: PREMEDICATION
     Dates: start: 20170112, end: 20170223
  5. CARBOPLATIN. [Suspect]
     Active Substance: CARBOPLATIN
     Indication: NON-SMALL CELL LUNG CANCER
     Route: 042
     Dates: start: 20170112, end: 20170223
  6. PARACETAMOL [Concomitant]
     Active Substance: ACETAMINOPHEN
     Indication: PREMEDICATION
     Dates: start: 20170315, end: 20170315
  7. DEXAMETHASONE. [Concomitant]
     Active Substance: DEXAMETHASONE
     Indication: PREMEDICATION
     Dates: start: 20170112, end: 20170223

REACTIONS (2)
  - Infusion related reaction [Recovered/Resolved]
  - Acute coronary syndrome [Recovered/Resolved]

NARRATIVE: CASE EVENT DATE: 20170315
